FAERS Safety Report 24075358 (Version 1)
Quarter: 2024Q3

REPORT INFORMATION
  Report Type: Spontaneous
  Country: CN (occurrence: CN)
  Receive Date: 20240710
  Receipt Date: 20240710
  Transmission Date: 20241016
  Serious: Yes (Other)
  Sender: SANDOZ
  Company Number: CN-SANDOZ-SDZ2024CN063690

PATIENT
  Age: 80 Year
  Sex: Male
  Weight: 60 kg

DRUGS (1)
  1. VORICONAZOLE [Suspect]
     Active Substance: VORICONAZOLE
     Indication: Fungal infection
     Dosage: 200 MG, Q12H
     Route: 048
     Dates: start: 20240627, end: 20240701

REACTIONS (3)
  - Psychotic symptom [Recovering/Resolving]
  - Hallucination, visual [Recovering/Resolving]
  - Somnolence [Recovering/Resolving]

NARRATIVE: CASE EVENT DATE: 20240701
